FAERS Safety Report 17777319 (Version 2)
Quarter: 2020Q2

REPORT INFORMATION
  Report Type: Spontaneous
  Country: IN (occurrence: IN)
  Receive Date: 20200513
  Receipt Date: 20200522
  Transmission Date: 20200714
  Serious: Yes (Hospitalization, Other)
  Sender: FDA-Public Use
  Company Number: IN-ACCORD-181206

PATIENT
  Age: 50 Year
  Sex: Male

DRUGS (3)
  1. TACROLIMUS. [Suspect]
     Active Substance: TACROLIMUS
     Indication: IMMUNOSUPPRESSANT DRUG THERAPY
     Dosage: REDUCED DOSE
  2. MYCOPHENOLIC ACID. [Suspect]
     Active Substance: MYCOPHENOLIC ACID
     Indication: IMMUNOSUPPRESSANT DRUG THERAPY
  3. TACROLIMUS. [Suspect]
     Active Substance: TACROLIMUS
     Indication: IMMUNOSUPPRESSANT DRUG THERAPY

REACTIONS (9)
  - Transplant dysfunction [Not Recovered/Not Resolved]
  - End stage renal disease [Not Recovered/Not Resolved]
  - Thrombotic microangiopathy [Unknown]
  - Pancytopenia [Unknown]
  - Metabolic acidosis [Unknown]
  - Drug level increased [Recovering/Resolving]
  - C3 glomerulopathy [Not Recovered/Not Resolved]
  - Diarrhoea [Unknown]
  - Renal tubular injury [Not Recovered/Not Resolved]
